FAERS Safety Report 19308597 (Version 4)
Quarter: 2021Q3

REPORT INFORMATION
  Report Type: Spontaneous
  Country: JP (occurrence: JP)
  Receive Date: 20210526
  Receipt Date: 20210707
  Transmission Date: 20211014
  Serious: Yes (Disabling, Other)
  Sender: FDA-Public Use
  Company Number: JP-009507513-2012JPN002245J

PATIENT
  Age: 65 Year
  Sex: Female
  Weight: 64 kg

DRUGS (8)
  1. KEYTRUDA [Suspect]
     Active Substance: PEMBROLIZUMAB
     Indication: TRANSITIONAL CELL CARCINOMA
     Dosage: 200 MILLIGRAM, Q3W
     Route: 041
     Dates: start: 20200611, end: 20200727
  2. TAKECAB [Concomitant]
     Active Substance: VONOPRAZAN FUMARATE
     Indication: GASTROOESOPHAGEAL REFLUX DISEASE
     Dosage: 10 MILLIGRAM, QD
     Route: 048
     Dates: start: 20200601
  3. OLMESARTAN [OLMESARTAN MEDOXOMIL] [Concomitant]
     Active Substance: OLMESARTAN MEDOXOMIL
     Indication: HYPERTENSION
     Dosage: 20 MILLIGRAM, QD
     Route: 048
     Dates: start: 20200601, end: 20200904
  4. BAYASPIRIN [Concomitant]
     Active Substance: ASPIRIN
     Indication: THROMBOCYTOSIS
     Dosage: 100 MILLIGRAM, QD
     Route: 048
     Dates: start: 20200601
  5. LIALDA [Suspect]
     Active Substance: MESALAMINE
     Indication: IMMUNE-MEDIATED ENTEROCOLITIS
     Dosage: 1200 MILLIGRAM, QID
     Route: 048
     Dates: start: 20200806, end: 20200928
  6. TOARASET [Concomitant]
     Active Substance: ACETAMINOPHEN\TRAMADOL HYDROCHLORIDE
     Indication: BACK PAIN
     Dosage: 1 DOSAGE FORM, TID
     Route: 048
     Dates: start: 20200601, end: 20200904
  7. SENNOSIDE A+B [Concomitant]
     Active Substance: SENNOSIDES A AND B
     Indication: CONSTIPATION
     Dosage: 2 DOSAGE FORM, QD
     Route: 048
     Dates: start: 20200601, end: 20200904
  8. ETODOLAC. [Concomitant]
     Active Substance: ETODOLAC
     Indication: BACK PAIN
     Dosage: 200 MILLIGRAM, BID
     Route: 048
     Dates: start: 20200601, end: 20200904

REACTIONS (3)
  - Immune-mediated pancreatitis [Recovered/Resolved]
  - Immune-mediated enterocolitis [Recovered/Resolved]
  - Renal impairment [Unknown]

NARRATIVE: CASE EVENT DATE: 20200805
